FAERS Safety Report 5591860-X (Version None)
Quarter: 2008Q1

REPORT INFORMATION
  Report Type: 
  Country: None (occurrence: None)
  Receive Date: 20080115
  Receipt Date: 20080103
  Transmission Date: 20080703
  Serious: Yes (Other)
  Sender: FDA-Public Use
  Company Number: B0502662A

PATIENT
  Sex: Male

DRUGS (2)
  1. SEROXAT [Suspect]
  2. MIRTAZAPINE [Concomitant]

REACTIONS (9)
  - AGGRESSION [None]
  - AGITATION [None]
  - ANGER [None]
  - CRYING [None]
  - DRUG WITHDRAWAL SYNDROME [None]
  - EMOTIONAL DISORDER [None]
  - INSOMNIA [None]
  - NIGHTMARE [None]
  - VERBAL ABUSE [None]
